FAERS Safety Report 6701868-6 (Version None)
Quarter: 2010Q2

REPORT INFORMATION
  Report Type: 
  Country: None (occurrence: None)
  Receive Date: 20100429
  Receipt Date: 20100427
  Transmission Date: 20101027
  Serious: Yes (Life-Threatening, Hospitalization, Other)
  Sender: FDA-Public Use
  Company Number: PL-ROXANE LABORATORIES, INC.-2010-RO-00470RO

PATIENT
  Age: 17 Year
  Sex: Female

DRUGS (9)
  1. AMLODIPINE [Suspect]
     Indication: SUICIDE ATTEMPT
     Dosage: 290 MG
     Route: 048
  2. CALCIUM GLUCONATE [Suspect]
     Route: 042
  3. VERAPAMIL [Suspect]
     Indication: SUICIDE ATTEMPT
     Dosage: 2400 MG
     Route: 048
  4. METOPROLOL [Suspect]
     Indication: SUICIDE ATTEMPT
     Dosage: 500 MG
     Route: 048
  5. IBUPROFEN [Suspect]
     Indication: SUICIDE ATTEMPT
     Dosage: 4400 MG
     Route: 048
  6. EPINEPHRINE [Suspect]
     Route: 042
  7. NORADRENALINE [Suspect]
     Route: 042
  8. DOBUTAMINE HCL [Suspect]
     Route: 042
  9. DOPAMINE HCL [Suspect]

REACTIONS (22)
  - ALANINE AMINOTRANSFERASE INCREASED [None]
  - ANURIA [None]
  - APNOEA [None]
  - ASPARTATE AMINOTRANSFERASE INCREASED [None]
  - BLOOD CREATININE INCREASED [None]
  - BLOOD UREA INCREASED [None]
  - CARDIOGENIC SHOCK [None]
  - DIZZINESS [None]
  - DRUG TOXICITY [None]
  - HEPATOJUGULAR REFLUX [None]
  - HYPERGLYCAEMIA [None]
  - HYPERKALAEMIA [None]
  - HYPOTONIA [None]
  - INTERNATIONAL NORMALISED RATIO INCREASED [None]
  - METABOLIC ACIDOSIS [None]
  - NAUSEA [None]
  - NODAL RHYTHM [None]
  - PROTEIN URINE PRESENT [None]
  - PULMONARY OEDEMA [None]
  - SOMNOLENCE [None]
  - SUICIDE ATTEMPT [None]
  - VENTRICULAR FIBRILLATION [None]
